FAERS Safety Report 16306295 (Version 2)
Quarter: 2020Q4

REPORT INFORMATION
  Report Type: Spontaneous
  Country: US (occurrence: US)
  Receive Date: 20190513
  Receipt Date: 20201124
  Transmission Date: 20210113
  Serious: Yes (Congenital Anomaly)
  Sender: FDA-Public Use
  Company Number: US-JNJFOC-20190503840

PATIENT
  Age: 14 Month
  Sex: Male
  Weight: 2.98 kg

DRUGS (9)
  1. PROGESTERONE. [Concomitant]
     Active Substance: PROGESTERONE
     Indication: UNEVALUABLE EVENT
     Route: 048
     Dates: start: 20150727
  2. GONAL-F [Concomitant]
     Active Substance: FOLLITROPIN
     Indication: UNEVALUABLE EVENT
     Route: 065
  3. TYLENOL [Suspect]
     Active Substance: ACETAMINOPHEN
     Indication: NASOPHARYNGITIS
     Route: 048
     Dates: start: 20150620, end: 20150621
  4. STELARA [Suspect]
     Active Substance: USTEKINUMAB
     Route: 064
  5. TYLENOL [Suspect]
     Active Substance: ACETAMINOPHEN
     Indication: HEADACHE
     Route: 048
     Dates: start: 20150629, end: 20150630
  6. STELARA [Suspect]
     Active Substance: USTEKINUMAB
     Indication: PSORIASIS
     Route: 064
     Dates: start: 20140401
  7. PROGESTERONE. [Concomitant]
     Active Substance: PROGESTERONE
     Indication: UNEVALUABLE EVENT
     Route: 067
     Dates: start: 20150418, end: 20150726
  8. STELARA [Suspect]
     Active Substance: USTEKINUMAB
     Route: 064
     Dates: end: 20150411
  9. CAFFEINE. [Concomitant]
     Active Substance: CAFFEINE
     Route: 048
     Dates: start: 20150422

REACTIONS (2)
  - Anterior displaced anus [Unknown]
  - Foetal exposure during pregnancy [Unknown]

NARRATIVE: CASE EVENT DATE: 201704
